FAERS Safety Report 5454563-8 (Version None)
Quarter: 2007Q3

REPORT INFORMATION
  Report Type: 
  Country: None (occurrence: None)
  Receive Date: 20070917
  Receipt Date: 20060912
  Transmission Date: 20080115
  Serious: Yes (Hospitalization)
  Sender: FDA-Public Use
  Company Number: US-ASTRAZENECA-2006UW17933

PATIENT
  Age: 43 Year
  Sex: Male

DRUGS (3)
  1. SEROQUEL [Suspect]
     Indication: SCHIZOAFFECTIVE DISORDER
     Route: 048
     Dates: start: 20060401
  2. SEROQUEL [Suspect]
     Route: 048
     Dates: start: 20040101
  3. SINEMET [Concomitant]

REACTIONS (3)
  - ABNORMAL DREAMS [None]
  - ACCIDENTAL OVERDOSE [None]
  - SOMNOLENCE [None]
